FAERS Safety Report 7388570-5 (Version None)
Quarter: 2011Q2

REPORT INFORMATION
  Report Type: 
  Country: None (occurrence: None)
  Receive Date: 20110401
  Receipt Date: 20110324
  Transmission Date: 20111010
  Serious: Yes (Death, Other)
  Sender: FDA-Public Use
  Company Number: AU-JNJFOC-20110311439

PATIENT
  Sex: Male
  Weight: 84 kg

DRUGS (1)
  1. RISPERDAL CONSTA [Suspect]
     Indication: PRODUCT USED FOR UNKNOWN INDICATION
     Route: 030

REACTIONS (4)
  - ASTHMA [None]
  - SYNCOPE [None]
  - CORONARY ARTERY DISEASE [None]
  - HYPERSENSITIVITY [None]
